FAERS Safety Report 8236725-X (Version None)
Quarter: 2012Q1

REPORT INFORMATION
  Report Type: 
  Country: None (occurrence: None)
  Receive Date: 20120326
  Receipt Date: 20120326
  Transmission Date: 20120608
  Serious: Yes (Life-Threatening, Hospitalization)
  Sender: FDA-Public Use
  Company Number: None

PATIENT
  Age: 47 Year
  Sex: Female
  Weight: 155.1 kg

DRUGS (12)
  1. TIKOSYN [Suspect]
     Indication: ATRIAL FIBRILLATION
     Dosage: 500 MG Q12 HR ORAL
     Route: 048
     Dates: start: 20120120, end: 20120123
  2. FUROSEMIDE [Concomitant]
  3. TOPIRAMATE [Concomitant]
  4. ASPIRIN [Concomitant]
  5. MAGNESIUM OXIDE [Concomitant]
  6. DABIGATRAN [Concomitant]
  7. DIGOXIN [Concomitant]
  8. MORPHINE [Concomitant]
  9. TEMAZEPAM [Concomitant]
  10. LISINOPRIL [Concomitant]
  11. DILTIAZEM HCL [Concomitant]
  12. METOPROLOL TARTRATE [Concomitant]

REACTIONS (3)
  - CARDIO-RESPIRATORY ARREST [None]
  - TORSADE DE POINTES [None]
  - VENTRICULAR TACHYCARDIA [None]
